FAERS Safety Report 6015741-2 (Version None)
Quarter: 2008Q4

REPORT INFORMATION
  Report Type: 
  Country: None (occurrence: None)
  Receive Date: 20081222
  Receipt Date: 20080714
  Transmission Date: 20090506
  Serious: No
  Sender: FDA-Public Use
  Company Number: US-BAYER-200813080BCC

PATIENT
  Age: 55 Year
  Sex: Female
  Weight: 73 kg

DRUGS (4)
  1. ALEVE (CAPLET) [Suspect]
     Indication: PAIN
     Dosage: UNIT DOSE: 220 MG
     Dates: start: 20080709
  2. ALEVE (CAPLET) [Suspect]
     Dosage: AS USED: 440 MG  UNIT DOSE: 220 MG
     Dates: start: 20080710
  3. CALTRATE [Concomitant]
  4. MOVE FREE SCHIFF JOINT SUPPLEMENT [Concomitant]

REACTIONS (1)
  - PAIN [None]
